FAERS Safety Report 6959893-6 (Version None)
Quarter: 2010Q3

REPORT INFORMATION
  Report Type: 
  Country: None (occurrence: None)
  Receive Date: 20100901
  Receipt Date: 20100824
  Transmission Date: 20110219
  Serious: No
  Sender: FDA-Public Use
  Company Number: 2010BI006038

PATIENT
  Age: 25 Year
  Sex: Female

DRUGS (2)
  1. TYSABRI [Suspect]
     Indication: MULTIPLE SCLEROSIS
     Route: 042
     Dates: start: 20050202, end: 20050203
  2. TYSABRI [Suspect]
     Route: 042
     Dates: start: 20090316, end: 20100118

REACTIONS (1)
  - DRUG SPECIFIC ANTIBODY PRESENT [None]
